FAERS Safety Report 4860847-4 (Version None)
Quarter: 2005Q4

REPORT INFORMATION
  Report Type: 
  Country: None (occurrence: None)
  Receive Date: 20051220
  Receipt Date: 20051209
  Transmission Date: 20060501
  Serious: Yes (Death)
  Sender: FDA-Public Use
  Company Number: CA-BRISTOL-MYERS SQUIBB COMPANY-13218474

PATIENT
  Age: 84 Year
  Sex: Male

DRUGS (5)
  1. TEQUIN [Suspect]
     Route: 042
  2. ACARBOSE [Suspect]
     Route: 048
  3. AVANDIA [Suspect]
     Route: 048
  4. DIABETA [Suspect]
     Route: 048
  5. CEFTIN [Concomitant]

REACTIONS (2)
  - CONVULSION [None]
  - HYPOGLYCAEMIA [None]
